FAERS Safety Report 15882676 (Version 1)
Quarter: 2019Q1

REPORT INFORMATION
  Report Type: Spontaneous
  Country: US (occurrence: US)
  Receive Date: 20190129
  Receipt Date: 20190129
  Transmission Date: 20190417
  Serious: Yes (Life-Threatening, Hospitalization, Other)
  Sender: FDA-Public Use
  Company Number: US-LUPIN PHARMACEUTICALS INC.-2019-00363

PATIENT
  Age: 50 Year
  Sex: Female
  Weight: 30 kg

DRUGS (2)
  1. METFORMIN [Suspect]
     Active Substance: METFORMIN HYDROCHLORIDE
     Indication: EUPHORIC MOOD
  2. METFORMIN [Suspect]
     Active Substance: METFORMIN HYDROCHLORIDE
     Indication: WEIGHT DECREASED
     Dosage: 2 DF, UNK, SEVERAL TIMES DAILY
     Route: 048

REACTIONS (20)
  - Weight decreased [Recovering/Resolving]
  - Hypothermia [Recovering/Resolving]
  - Shock [Recovering/Resolving]
  - Respiratory disorder [Recovering/Resolving]
  - Prescription drug used without a prescription [Unknown]
  - Drug abuse [Unknown]
  - Acute kidney injury [Not Recovered/Not Resolved]
  - Hallucination, visual [Recovering/Resolving]
  - Hypotension [Recovering/Resolving]
  - Toxicity to various agents [Recovering/Resolving]
  - Drug level increased [Unknown]
  - Ill-defined disorder [Recovering/Resolving]
  - Apparent death [Recovering/Resolving]
  - Lactic acidosis [Recovering/Resolving]
  - Off label use [Unknown]
  - Disorientation [Recovering/Resolving]
  - Confusional state [Recovering/Resolving]
  - Cachexia [Recovering/Resolving]
  - Renal tubular necrosis [Not Recovered/Not Resolved]
  - Abdominal pain [Recovering/Resolving]
